FAERS Safety Report 4605071-5 (Version None)
Quarter: 2005Q1

REPORT INFORMATION
  Report Type: 
  Country: None (occurrence: None)
  Receive Date: 20050217
  Receipt Date: 20041210
  Transmission Date: 20050727
  Serious: No
  Sender: FDA-Public Use
  Company Number: S04-USA-07732-01

PATIENT
  Age: 86 Year
  Sex: Female

DRUGS (18)
  1. NAMENDA [Suspect]
     Indication: DEMENTIA
     Dosage: 10 MG BID PO
     Route: 048
     Dates: start: 20040101
  2. NAMENDA [Suspect]
     Indication: DEMENTIA
     Dosage: 5 MG QD PO
     Route: 048
     Dates: start: 20041101, end: 20040101
  3. NAMENDA [Suspect]
     Indication: DEMENTIA
     Dosage: 5 MG BID PO
     Route: 048
     Dates: start: 20040101, end: 20040101
  4. NAMENDA [Suspect]
     Indication: DEMENTIA
     Dosage: 15 MG QD PO
     Route: 048
     Dates: start: 20040101, end: 20040101
  5. ISOSORBIDE [Concomitant]
  6. NORVASC [Concomitant]
  7. BENICAR [Concomitant]
  8. FUROSEMIDE [Concomitant]
  9. KLOR-CON [Concomitant]
  10. AMIODARONE HCL [Concomitant]
  11. ZOCOR [Concomitant]
  12. CELEBREX [Concomitant]
  13. SINEMET [Concomitant]
  14. LEXAPRO [Concomitant]
  15. XANAX [Concomitant]
  16. FERROUS SULFATE TAB [Concomitant]
  17. VITAMIN E [Concomitant]
  18. VITAMIN C [Concomitant]

REACTIONS (3)
  - FATIGUE [None]
  - FEELING ABNORMAL [None]
  - VISION BLURRED [None]
